FAERS Safety Report 5431470-8 (Version None)
Quarter: 2007Q3

REPORT INFORMATION
  Report Type: 
  Country: None (occurrence: None)
  Receive Date: 20070830
  Receipt Date: 20070705
  Transmission Date: 20080115
  Serious: No
  Sender: FDA-Public Use
  Company Number: A0661896A

PATIENT
  Age: 31 Year
  Sex: Male

DRUGS (6)
  1. WELLBUTRIN XL [Suspect]
     Indication: DEPRESSION
     Dosage: 300MG PER DAY
     Route: 048
     Dates: start: 20000101
  2. LEXAPRO [Concomitant]
  3. REMERON [Concomitant]
  4. KLONOPIN [Concomitant]
  5. NEURONTIN [Concomitant]
  6. RISPERDAL [Concomitant]

REACTIONS (1)
  - DRUG INEFFECTIVE [None]
